FAERS Safety Report 6214068-3 (Version None)
Quarter: 2009Q2

REPORT INFORMATION
  Report Type: 
  Country: None (occurrence: None)
  Receive Date: 20090604
  Receipt Date: 20090528
  Transmission Date: 20091009
  Serious: Yes (Death)
  Sender: FDA-Public Use
  Company Number: GB-BAYER-200919989GPV

PATIENT
  Age: 17 Year

DRUGS (6)
  1. FLUDARABINE PHOSPHATE [Suspect]
     Indication: BONE MARROW TRANSPLANT
     Dosage: 150 MG/M2
  2. ALEMTUZUMAB [Suspect]
     Indication: BONE MARROW TRANSPLANT
     Dosage: 1 MG/KG
  3. MELPHALAN [Suspect]
     Indication: BONE MARROW TRANSPLANT
     Dosage: 140 MG/M2
  4. CYCLOSPORINE [Suspect]
     Indication: PROPHYLAXIS AGAINST GRAFT VERSUS HOST DISEASE
  5. ITRACONAZOLE [Suspect]
     Indication: ANTIFUNGAL PROPHYLAXIS
  6. CO-TRIMOXAZOLE [Concomitant]
     Indication: PROPHYLAXIS

REACTIONS (5)
  - ASPERGILLOMA [None]
  - MULTI-ORGAN FAILURE [None]
  - PERICARDITIS FUNGAL [None]
  - PERINEPHRIC ABSCESS [None]
  - SYSTEMIC MYCOSIS [None]
